FAERS Safety Report 8962728 (Version 1)
Quarter: 2012Q4

REPORT INFORMATION
  Report Type: 
  Country: NL (occurrence: NL)
  Receive Date: 20121214
  Receipt Date: 20121214
  Transmission Date: 20130627
  Serious: Yes (Other)
  Sender: FDA-Public Use
  Company Number: PHHY2012NL114837

PATIENT
  Sex: Male

DRUGS (3)
  1. ZOMETA [Suspect]
     Indication: PROSTATE CANCER METASTATIC
     Dosage: 4 mg, once per 28 days
     Route: 042
     Dates: start: 20111103
  2. ZOMETA [Suspect]
     Dosage: 4 mg, once per 28 days
     Route: 042
     Dates: start: 20121029
  3. ZOMETA [Suspect]
     Dosage: 4 mg, once per 28 days
     Route: 042
     Dates: start: 20121126

REACTIONS (1)
  - Terminal state [Unknown]
